FAERS Safety Report 8483159-9 (Version None)
Quarter: 2012Q3

REPORT INFORMATION
  Report Type: 
  Country: None (occurrence: None)
  Receive Date: 20120702
  Receipt Date: 20120626
  Transmission Date: 20120928
  Serious: Yes (Hospitalization, Other)
  Sender: FDA-Public Use
  Company Number: US-PFIZER INC-2012125361

PATIENT
  Sex: Female
  Weight: 77.098 kg

DRUGS (7)
  1. ZETIA [Concomitant]
     Indication: CARDIAC DISORDER
     Dosage: 10 MG, DAILY
  2. LANTUS [Concomitant]
     Indication: TYPE 1 DIABETES MELLITUS
     Dosage: 55 IU, DAILY
  3. LIPITOR [Suspect]
     Indication: BLOOD CHOLESTEROL ABNORMAL
     Dosage: 80 MG, DAILY
     Dates: start: 20110711
  4. ISOSORBIDE [Concomitant]
     Indication: CARDIAC DISORDER
     Dosage: 30 MG, DAILY
  5. NOVOLOG [Concomitant]
     Indication: TYPE 1 DIABETES MELLITUS
     Dosage: 9 IU, 3X/DAY
  6. LIPITOR [Suspect]
     Indication: CARDIAC DISORDER
  7. LASIX [Concomitant]
     Indication: RENAL DISORDER
     Dosage: 20 MG, DAILY

REACTIONS (3)
  - NEUROLOGICAL EXAMINATION ABNORMAL [None]
  - TRANSIENT ISCHAEMIC ATTACK [None]
  - CEREBROVASCULAR ACCIDENT [None]
